FAERS Safety Report 8113133-3 (Version None)
Quarter: 2012Q1

REPORT INFORMATION
  Report Type: 
  Country: None (occurrence: None)
  Receive Date: 20120203
  Receipt Date: 20120120
  Transmission Date: 20120608
  Serious: Yes (Hospitalization, Other)
  Sender: FDA-Public Use
  Company Number: JP-AMGEN-JPNSP2012002824

PATIENT
  Age: 58 Year
  Sex: Female
  Weight: 45.4 kg

DRUGS (8)
  1. RHEUMATREX [Suspect]
     Indication: RHEUMATOID ARTHRITIS
     Dosage: UNK
     Route: 048
     Dates: start: 20100705, end: 20100805
  2. RHEUMATREX [Suspect]
     Dosage: 10 MG, WEEKLY
     Route: 048
     Dates: start: 20110520, end: 20110811
  3. ENBREL [Suspect]
     Indication: RHEUMATOID ARTHRITIS
     Dosage: 50 MG/2 WEEKS
     Route: 058
     Dates: start: 20110107, end: 20110303
  4. ENBREL [Suspect]
     Dosage: 50 MG, WEEKLY
     Route: 058
     Dates: start: 20110304, end: 20111216
  5. RHEUMATREX [Suspect]
     Dosage: 8 MG, WEEKLY
     Route: 048
     Dates: start: 20100806, end: 20110519
  6. FOLIC ACID [Concomitant]
     Indication: PROPHYLAXIS
     Dosage: 5 MG, WEEKLY
     Route: 048
     Dates: start: 20100806, end: 20111216
  7. RHEUMATREX [Suspect]
     Dosage: 12 MG, WEEKLY
     Route: 048
     Dates: start: 20110812, end: 20111124
  8. RHEUMATREX [Suspect]
     Dosage: 14 MG, WEEKLY
     Route: 048
     Dates: start: 20111125, end: 20111216

REACTIONS (2)
  - PLEURISY [None]
  - RHEUMATOID ARTHRITIS [None]
